FAERS Safety Report 15893384 (Version 2)
Quarter: 2019Q2

REPORT INFORMATION
  Report Type: Spontaneous
  Country: FR (occurrence: FR)
  Receive Date: 20190130
  Receipt Date: 20190402
  Transmission Date: 20190711
  Serious: Yes (Life-Threatening, Hospitalization)
  Sender: FDA-Public Use
  Company Number: FR-SUN PHARMACEUTICAL INDUSTRIES LTD-2019RR-197580

PATIENT
  Age: 84 Year
  Sex: Female
  Weight: 81.8 kg

DRUGS (14)
  1. TENORETIC 50 MG/12,5 MG, COMPRIME PELLICULE SECABLE [Concomitant]
     Indication: PRODUCT USED FOR UNKNOWN INDICATION
     Dosage: ()
     Route: 065
  2. ABASAGLAR 100 UNITES/ML, SOLUTION INJECTABLE EN STYLO PREREMPLI [Concomitant]
     Indication: PRODUCT USED FOR UNKNOWN INDICATION
     Dosage: ()
     Route: 065
  3. ATORVASTATINE [Concomitant]
     Active Substance: ATORVASTATIN
     Indication: PRODUCT USED FOR UNKNOWN INDICATION
     Route: 065
  4. AMLODIPINE [Concomitant]
     Active Substance: AMLODIPINE BESYLATE
     Indication: PRODUCT USED FOR UNKNOWN INDICATION
     Route: 065
  5. GABAPENTINE [Suspect]
     Active Substance: GABAPENTIN
     Indication: PRODUCT ADMINISTRATION ERROR
     Dosage: 300 MILLIGRAM, UNK
     Route: 048
     Dates: start: 20181206
  6. VENLAFAXINE [Suspect]
     Active Substance: VENLAFAXINE HYDROCHLORIDE
     Indication: PRODUCT ADMINISTRATION ERROR
     Dosage: 37.5 MILLIGRAM, UNK
     Route: 048
     Dates: start: 20181206
  7. SERESTA 10 MG, COMPRIME [Suspect]
     Active Substance: OXAZEPAM
     Indication: PRODUCT ADMINISTRATION ERROR
     Dosage: 20 MILLIGRAM, UNK
     Route: 048
     Dates: start: 20181206
  8. DUPHALAC 10 G, POUDRE ORALE OU POUR SOLUTION RECTALE EN SACHET [Concomitant]
     Indication: PRODUCT USED FOR UNKNOWN INDICATION
     Dosage: ()
     Route: 065
  9. FUROSEMIDE. [Concomitant]
     Active Substance: FUROSEMIDE
     Indication: PRODUCT USED FOR UNKNOWN INDICATION
     Route: 065
  10. RILMENIDINE [Concomitant]
     Active Substance: RILMENIDINE
     Indication: PRODUCT USED FOR UNKNOWN INDICATION
     Dosage: 1 MILLIGRAM
     Route: 065
  11. INEXIUM 40 MG, COMPRIME GASTRO-RESISTANT [Concomitant]
     Active Substance: ESOMEPRAZOLE MAGNESIUM
     Indication: PRODUCT USED FOR UNKNOWN INDICATION
     Dosage: ()
     Route: 065
  12. HYDROCORTISONE ROUSSEL 10 MG, COMPRIME [Suspect]
     Active Substance: HYDROCORTISONE
     Indication: PRODUCT ADMINISTRATION ERROR
     Dosage: 10 MILLIGRAM, UNK
     Route: 048
     Dates: start: 20181206
  13. NOVORAPID FLEXPEN 100 U/ML, SOLUTION INJECTABLE EN STYLO PREREMPLI [Concomitant]
     Indication: PRODUCT USED FOR UNKNOWN INDICATION
     Dosage: ()
     Route: 065
  14. KARDEGIC [Concomitant]
     Active Substance: ASPIRIN DL-LYSINE
     Indication: PRODUCT USED FOR UNKNOWN INDICATION
     Dosage: ()
     Route: 065

REACTIONS (5)
  - Product administration error [Recovered/Resolved]
  - Somnolence [Recovered/Resolved]
  - Anuria [Recovered/Resolved]
  - Wrong patient received product [Recovered/Resolved]
  - Hypercapnia [Recovered/Resolved]

NARRATIVE: CASE EVENT DATE: 20181206
